APPROVED DRUG PRODUCT: LIDOCAINE HYDROCHLORIDE VISCOUS
Active Ingredient: LIDOCAINE HYDROCHLORIDE
Strength: 2%
Dosage Form/Route: SOLUTION;ORAL
Application: A040708 | Product #001 | TE Code: AT
Applicant: CHARTWELL MOLECULAR HOLDINGS LLC
Approved: Feb 27, 2007 | RLD: No | RS: No | Type: RX